FAERS Safety Report 21247070 (Version 1)
Quarter: 2022Q3

REPORT INFORMATION
  Report Type: Spontaneous
  Country: CO (occurrence: CO)
  Receive Date: 20220824
  Receipt Date: 20220824
  Transmission Date: 20221026
  Serious: Yes (Other)
  Sender: FDA-Public Use
  Company Number: CO-BAYER-2022P011596

PATIENT
  Age: 12 Year
  Sex: Female

DRUGS (3)
  1. DESLORATADINE [Suspect]
     Active Substance: DESLORATADINE
     Dosage: 10 DF, ONCE
     Route: 048
  2. ASPIRIN\CAFFEINE [Suspect]
     Active Substance: ASPIRIN\CAFFEINE
     Dosage: 12 DF, ONCE
     Route: 048
  3. AMOXICILLIN [Suspect]
     Active Substance: AMOXICILLIN
     Dosage: 4 DF, ONCE
     Route: 048

REACTIONS (3)
  - Suicide attempt [Unknown]
  - Dizziness [Unknown]
  - Nausea [Unknown]
